FAERS Safety Report 24023964 (Version 2)
Quarter: 2024Q3

REPORT INFORMATION
  Report Type: Spontaneous
  Country: JP (occurrence: JP)
  Receive Date: 20240627
  Receipt Date: 20240811
  Transmission Date: 20241017
  Serious: Yes (Hospitalization)
  Sender: AMGEN
  Company Number: JP-KYOWAKIRIN-2024KK014948

PATIENT
  Age: 51 Year
  Sex: Female

DRUGS (27)
  1. PEGFILGRASTIM [Suspect]
     Active Substance: PEGFILGRASTIM
     Indication: Product used for unknown indication
     Dosage: 3.6 MILLIGRAM (3.6 MG, 1X/2-3 WEEKS, TOTAL DOSE: 6 DOSES)
     Route: 058
     Dates: start: 20240129, end: 20240425
  2. NAUZELIN [Suspect]
     Active Substance: DOMPERIDONE
     Indication: Vomiting
     Dosage: 10 MG, TID, AFTER EACH MEAL
     Route: 048
  3. CEFAZOLIN SODIUM [Concomitant]
     Active Substance: CEFAZOLIN SODIUM
     Indication: Product used for unknown indication
     Dosage: 1 G, SINGLE, PREOPERATIVE ADMINISTRATION
     Route: 041
     Dates: start: 20240124, end: 20240124
  4. EPIRUBICIN HYDROCHLORIDE [Concomitant]
     Active Substance: EPIRUBICIN HYDROCHLORIDE
     Indication: Breast cancer
     Dosage: 143 MG (90MG/M2), 1X/2 WEEKS, TOTAL DOSE: 4 DOSES
     Route: 041
     Dates: start: 20240125, end: 20240314
  5. CYCLOPHOSPHAMIDE [Concomitant]
     Active Substance: CYCLOPHOSPHAMIDE
     Indication: Breast cancer
     Dosage: 950 MG (600MG/M2), 1X/2 WEEKS, TOTAL DOSE: 4 DOSES
     Route: 041
     Dates: start: 20240125, end: 20240314
  6. PALONOSETRON [Concomitant]
     Active Substance: PALONOSETRON
     Indication: Prophylaxis of nausea and vomiting
     Dosage: 0.75 MG, 1X/2-3 WEEKS, TOTAL DOSE: 6 DOSES
     Route: 041
     Dates: start: 20240125, end: 20240423
  7. FOSNETUPITANT CHLORIDE HYDROCHLORIDE [Concomitant]
     Active Substance: FOSNETUPITANT CHLORIDE HYDROCHLORIDE
     Indication: Prophylaxis of nausea and vomiting
     Dosage: 235 MG, 1X/2 WEEKS, TOTAL DOSE: 4 DOSES
     Route: 041
     Dates: start: 20240125, end: 20240314
  8. DEXAMETHASONE SODIUM PHOSPHATE [Concomitant]
     Active Substance: DEXAMETHASONE PHOSPHATE\DEXAMETHASONE SODIUM PHOSPHATE
     Indication: Allergy prophylaxis
     Dosage: 6.6 MG, 1X/2 WEEKS, TOTAL DOSE: 4 DOSES
     Route: 041
     Dates: start: 20240125, end: 20240314
  9. DEXAMETHASONE SODIUM PHOSPHATE [Concomitant]
     Active Substance: DEXAMETHASONE PHOSPHATE\DEXAMETHASONE SODIUM PHOSPHATE
     Indication: Prophylaxis of nausea and vomiting
     Dosage: 19.8 MG, 1X/3 WEEKS, TOTAL DOSE: 2 DOSES
     Route: 041
     Dates: start: 20240402, end: 20240423
  10. DOCETAXEL [Concomitant]
     Active Substance: DOCETAXEL\DOCETAXEL ANHYDROUS
     Indication: Breast cancer
     Dosage: 119 MG (75MG/M2), 1X/3 WEEKS, TOTAL DOSE: 2 DOSES
     Route: 041
     Dates: start: 20240402, end: 20240423
  11. DIPHENHYDRAMINE [Concomitant]
     Active Substance: DIPHENHYDRAMINE
     Indication: Allergy prophylaxis
     Dosage: 50 MG, 1X/3 WEEKS, TOTAL DOSE: 2 DOSES
     Route: 048
     Dates: start: 20240402, end: 20240423
  12. CALONAL [Concomitant]
     Active Substance: ACETAMINOPHEN
     Indication: Pain
     Dosage: 1 DF, SINGLE
     Route: 048
     Dates: start: 20240124
  13. CALONAL [Concomitant]
     Active Substance: ACETAMINOPHEN
     Dosage: 1 DF, TID, AFTER EACH MEAL
     Route: 048
  14. LORAZEPAM [Concomitant]
     Active Substance: LORAZEPAM
     Indication: Vomiting
     Dosage: 1 DF, BID, AFTER BREAKFAST AND DINNER
     Route: 048
  15. LORAZEPAM [Concomitant]
     Active Substance: LORAZEPAM
     Indication: Anxiety
     Dosage: UNK UNK, UNK
     Route: 065
  16. OLANZAPINE [Concomitant]
     Active Substance: OLANZAPINE
     Indication: Vomiting
     Dosage: 1 DF, QD, BEFORE GOING TO BED
     Route: 048
  17. CIPROXAN BAYER YAKUHIN [Concomitant]
     Indication: Pyrexia
     Dosage: 1 DF, TID, MORNING, AFTERNOON, AND EVENING
     Route: 048
  18. CIPROXAN BAYER YAKUHIN [Concomitant]
     Indication: Antibiotic therapy
     Dosage: UNK UNK, UNK
     Route: 065
  19. DECADRON [Concomitant]
     Active Substance: DEXAMETHASONE
     Indication: Vomiting
     Dosage: 1 DF, QD, AFTER BREAKFAST
     Route: 048
  20. DECADRON [Concomitant]
     Active Substance: DEXAMETHASONE
     Dosage: 1 DF, BID, AFTER BREAKFAST AND LUNCH
     Route: 048
  21. DOMPERIDONE [Concomitant]
     Active Substance: DOMPERIDONE
     Indication: Vomiting
     Dosage: 1 DF, TID, AFTER EACH MEAL
     Route: 048
  22. MAGNESIUM OXIDE [Concomitant]
     Active Substance: MAGNESIUM OXIDE
     Indication: Constipation
     Dosage: 1 DF, TID, AFTER EACH MEAL
     Route: 048
  23. MAGNESIUM OXIDE [Concomitant]
     Active Substance: MAGNESIUM OXIDE
     Dosage: 2 DF, TID, AFTER EACH MEAL
     Route: 048
  24. SENNOSIDE A [Concomitant]
     Active Substance: SENNOSIDE A
     Indication: Constipation
     Dosage: 2 DF, ADMINISTERED DURING CONSTIPATION.
     Route: 048
  25. CIPROFLOXACIN [Concomitant]
     Active Substance: CIPROFLOXACIN
     Indication: Antibiotic therapy
     Dosage: 1 DF, TID, MORNING, AFTERNOON, AND EVENING
     Route: 048
  26. CIPROFLOXACIN [Concomitant]
     Active Substance: CIPROFLOXACIN
     Dosage: 1 DF, TID, AFTER EACH MEAL
     Route: 048
  27. ZINC [Concomitant]
     Active Substance: ZINC
     Indication: Zinc deficiency
     Dosage: 1 DF, BID, AFTER BREAKFAST AND DINNER
     Route: 048

REACTIONS (3)
  - Vasculitis [Recovering/Resolving]
  - Pyrexia [Recovering/Resolving]
  - Myalgia [Recovering/Resolving]

NARRATIVE: CASE EVENT DATE: 20240201
